FAERS Safety Report 20468354 (Version 2)
Quarter: 2022Q1

REPORT INFORMATION
  Report Type: Report from Study
  Country: US (occurrence: US)
  Receive Date: 20220214
  Receipt Date: 20220225
  Transmission Date: 20220424
  Serious: No
  Sender: FDA-Public Use
  Company Number: US-BIOVITRUM-2022US01887

PATIENT
  Sex: Female

DRUGS (1)
  1. KINERET [Suspect]
     Active Substance: ANAKINRA
     Indication: Rheumatoid arthritis
     Route: 058
     Dates: start: 20220201

REACTIONS (11)
  - Headache [Unknown]
  - Gait disturbance [Unknown]
  - Arthralgia [Unknown]
  - Stomatitis [Unknown]
  - Peak expiratory flow rate increased [Unknown]
  - Oral candidiasis [Unknown]
  - Malaise [Unknown]
  - Arthralgia [Unknown]
  - Peripheral swelling [Unknown]
  - Hypersensitivity [Unknown]
  - Injection site pain [Unknown]
